FAERS Safety Report 7022082-3 (Version None)
Quarter: 2010Q3

REPORT INFORMATION
  Report Type: 
  Country: None (occurrence: None)
  Receive Date: 20100930
  Receipt Date: 20100927
  Transmission Date: 20110219
  Serious: Yes (Death)
  Sender: FDA-Public Use
  Company Number: LT-BRISTOL-MYERS SQUIBB COMPANY-15166580

PATIENT
  Age: 66 Year
  Sex: Male
  Weight: 86 kg

DRUGS (3)
  1. CETUXIMAB [Suspect]
     Indication: NON-SMALL CELL LUNG CANCER
     Dosage: RECENT INF 21JAN2010.CETUXIMAB2MG/ML ACTUAL DOSE 475MG;TAKEN8INF; 250MG/M2:STANDARD DOSE:WEEKLY
     Route: 042
     Dates: start: 20091125, end: 20100121
  2. CARBOPLATIN [Suspect]
     Indication: NON-SMALL CELL LUNG CANCER
     Dosage: RECENT INF ON 14JAN2010(3RD INF) AUC5:Q3W:4 CYCLE 535MG (1 IN 3 WK)
     Route: 042
     Dates: start: 20091125, end: 20100114
  3. GEMCITABINE HCL [Suspect]
     Indication: NON-SMALL CELL LUNG CANCER
     Dosage: RECENT INF 14JAN2010:3INF.1200MG/M2:D1,8,Q3W FOR 4CYCLE
     Route: 042
     Dates: start: 20091125, end: 20100114

REACTIONS (1)
  - TUMOUR HAEMORRHAGE [None]
